FAERS Safety Report 25825039 (Version 1)
Quarter: 2025Q3

REPORT INFORMATION
  Report Type: Spontaneous
  Country: US (occurrence: US)
  Receive Date: 20250919
  Receipt Date: 20250919
  Transmission Date: 20251020
  Serious: Yes (Other)
  Sender: PFIZER
  Company Number: US-PFIZER INC-202500184607

PATIENT
  Age: 43 Year
  Sex: Male
  Weight: 160.2 kg

DRUGS (12)
  1. SODIUM BICARBONATE [Suspect]
     Active Substance: SODIUM BICARBONATE
     Indication: Electrocardiogram QRS complex prolonged
     Route: 041
  2. SODIUM BICARBONATE [Suspect]
     Active Substance: SODIUM BICARBONATE
     Indication: Toxicity to various agents
  3. SODIUM BICARBONATE [Suspect]
     Active Substance: SODIUM BICARBONATE
     Indication: Lactic acidosis
  4. EPINEPHRINE [Suspect]
     Active Substance: EPINEPHRINE
     Indication: Nervous system disorder prophylaxis
     Route: 042
  5. EPINEPHRINE [Suspect]
     Active Substance: EPINEPHRINE
     Indication: Cardiovascular event prophylaxis
  6. ACTIVATED CHARCOAL [Concomitant]
     Active Substance: ACTIVATED CHARCOAL
     Indication: Prophylaxis
  7. FAT EMULSION NOS [Concomitant]
     Active Substance: EGG PHOSPHOLIPIDS\SAFFLOWER OIL\SOYBEAN OIL
     Indication: Nervous system disorder prophylaxis
     Route: 042
  8. FAT EMULSION NOS [Concomitant]
     Active Substance: EGG PHOSPHOLIPIDS\SAFFLOWER OIL\SOYBEAN OIL
     Indication: Cardiovascular event prophylaxis
  9. FAT EMULSION NOS [Concomitant]
     Active Substance: EGG PHOSPHOLIPIDS\SAFFLOWER OIL\SOYBEAN OIL
     Indication: Intentional overdose
  10. DIAZEPAM [Concomitant]
     Active Substance: DIAZEPAM
     Indication: Nervous system disorder prophylaxis
     Route: 042
  11. DIAZEPAM [Concomitant]
     Active Substance: DIAZEPAM
     Indication: Cardiovascular event prophylaxis
     Dosage: 1 MG/KG, 1X/DAY
     Route: 042
  12. CALCIUM GLUCONATE [Concomitant]
     Active Substance: CALCIUM GLUCONATE
     Indication: Electrocardiogram QT prolonged

REACTIONS (3)
  - Hypokalaemia [Unknown]
  - Off label use [Unknown]
  - Drug effective for unapproved indication [Unknown]
